FAERS Safety Report 5245369-3 (Version None)
Quarter: 2007Q1

REPORT INFORMATION
  Report Type: 
  Country: None (occurrence: None)
  Receive Date: 20070223
  Receipt Date: 20070215
  Transmission Date: 20070707
  Serious: Yes (Hospitalization)
  Sender: FDA-Public Use
  Company Number: HQWYE512626JAN06

PATIENT
  Sex: Male
  Weight: 46.2 kg

DRUGS (10)
  1. SIROLIMUS [Suspect]
     Indication: PROPHYLAXIS AGAINST TRANSPLANT REJECTION
     Dates: start: 20051215
  2. CANDESARTAN [Concomitant]
     Indication: HYPERTENSION
     Route: 048
  3. PREDNISOLONE [Concomitant]
     Indication: PROPHYLAXIS AGAINST TRANSPLANT REJECTION
     Route: 048
     Dates: start: 20060104
  4. SPIRONOLACTONE [Concomitant]
     Indication: DIURETIC THERAPY
     Route: 048
     Dates: start: 20040202
  5. COLCHICINE [Concomitant]
     Indication: GOUT
     Route: 048
     Dates: start: 20051220
  6. ALLOPURINOL SODIUM [Concomitant]
     Indication: GOUT
     Route: 048
     Dates: start: 20060103
  7. MYCOPHENOLATE MOFETIL [Suspect]
     Indication: PROPHYLAXIS AGAINST TRANSPLANT REJECTION
     Route: 048
     Dates: start: 20001214, end: 20060120
  8. MYCOPHENOLATE MOFETIL [Suspect]
     Route: 048
     Dates: start: 20060121, end: 20060121
  9. MYCOPHENOLATE MOFETIL [Suspect]
     Route: 048
     Dates: start: 20060122, end: 20060122
  10. CARVEDILOL [Concomitant]
     Indication: CARDIAC FAILURE
     Dates: start: 20020130

REACTIONS (3)
  - DEHYDRATION [None]
  - DIARRHOEA [None]
  - VOMITING [None]
